FAERS Safety Report 8378451-2 (Version None)
Quarter: 2012Q2

REPORT INFORMATION
  Report Type: 
  Country: None (occurrence: None)
  Receive Date: 20120522
  Receipt Date: 20120217
  Transmission Date: 20120825
  Serious: No
  Sender: FDA-Public Use
  Company Number: US-ASTRAZENECA-2012SE11500

PATIENT
  Age: 51 Year
  Sex: Female
  Weight: 74.8 kg

DRUGS (2)
  1. PRILOSEC [Suspect]
     Indication: DYSPEPSIA
     Route: 048
     Dates: start: 20000101
  2. PRILOSEC [Suspect]
     Indication: IRRITABLE BOWEL SYNDROME
     Route: 048
     Dates: start: 20000101

REACTIONS (3)
  - DRUG DOSE OMISSION [None]
  - MALAISE [None]
  - OFF LABEL USE [None]
